FAERS Safety Report 4549499-0 (Version None)
Quarter: 2005Q1

REPORT INFORMATION
  Report Type: 
  Country: None (occurrence: None)
  Receive Date: 20050110
  Receipt Date: 20050110
  Transmission Date: 20050727
  Serious: Yes (Life-Threatening, Hospitalization)
  Sender: FDA-Public Use
  Company Number: None

PATIENT
  Sex: Female
  Weight: 65.318 kg

DRUGS (6)
  1. ADRIAMYCIN PFS [Suspect]
     Indication: BREAST CANCER
     Dosage: 60 MG/M2 EVERY 2 WEEKS IV
     Route: 042
     Dates: start: 20041112, end: 20041224
  2. CYTOXAN [Suspect]
     Indication: BREAST CANCER
     Dosage: 600 MG/M2 EVERY 2 WEEKS IV
     Route: 042
     Dates: start: 20041112, end: 20041224
  3. REGLAN [Concomitant]
  4. DECADRON [Concomitant]
  5. NEULASTA [Concomitant]
  6. ARANESP [Concomitant]

REACTIONS (6)
  - ANAEMIA [None]
  - ARTHRALGIA [None]
  - BETA HAEMOLYTIC STREPTOCOCCAL INFECTION [None]
  - INFECTION [None]
  - PNEUMONIA [None]
  - SEPSIS [None]
